FAERS Safety Report 16422348 (Version 2)
Quarter: 2023Q4

REPORT INFORMATION
  Report Type: Spontaneous
  Country: CH (occurrence: CH)
  Receive Date: 20190612
  Receipt Date: 20231006
  Transmission Date: 20240109
  Serious: Yes (Death, Hospitalization)
  Sender: FDA-Public Use
  Company Number: CH-PFIZER INC-2019244696

PATIENT
  Age: 74 Year
  Sex: Female

DRUGS (3)
  1. METHOTREXATE SODIUM [Interacting]
     Active Substance: METHOTREXATE SODIUM
     Indication: Polymyalgia rheumatica
     Dosage: 10 MG, DAILY
     Route: 048
  2. PREDNISONE [Suspect]
     Active Substance: PREDNISONE
     Dosage: UNK
  3. DICLOFENAC [Interacting]
     Active Substance: DICLOFENAC
     Indication: Pain
     Dosage: UNK

REACTIONS (9)
  - Accidental overdose [Fatal]
  - Drug interaction [Fatal]
  - Septic shock [Fatal]
  - Intestinal ischaemia [Fatal]
  - Pancytopenia [Fatal]
  - Acute hepatic failure [Fatal]
  - Acute kidney injury [Fatal]
  - Toxicity to various agents [Fatal]
  - Mucosal inflammation [Fatal]
